FAERS Safety Report 22034191 (Version 1)
Quarter: 2023Q1

REPORT INFORMATION
  Report Type: Spontaneous
  Country: US (occurrence: US)
  Receive Date: 20230224
  Receipt Date: 20230224
  Transmission Date: 20230418
  Serious: No
  Sender: FDA-Public Use
  Company Number: US-SANOFI-01502644

PATIENT
  Age: 48 Year
  Sex: Male

DRUGS (1)
  1. APIDRA SOLOSTAR [Suspect]
     Active Substance: INSULIN GLULISINE
     Indication: Type 1 diabetes mellitus
     Dosage: UNK UNK, BID

REACTIONS (3)
  - Visual impairment [Unknown]
  - Blood glucose fluctuation [Unknown]
  - Inappropriate schedule of product administration [Unknown]
